FAERS Safety Report 4835484-8 (Version None)
Quarter: 2005Q4

REPORT INFORMATION
  Report Type: 
  Country: None (occurrence: None)
  Receive Date: 20051121
  Receipt Date: 20051107
  Transmission Date: 20060501
  Serious: Yes (Death, Hospitalization)
  Sender: FDA-Public Use
  Company Number: 2005126002

PATIENT
  Age: 47 Year
  Sex: Male
  Weight: 75.5693 kg

DRUGS (3)
  1. NEURONTIN [Suspect]
     Indication: CONVULSION
     Dosage: (300 MG), ORAL
     Route: 048
  2. NEURONTIN [Suspect]
     Indication: PAIN
     Dosage: (300 MG), ORAL
     Route: 048
  3. ACETAMINOPHEN [Suspect]
     Indication: OVERDOSE

REACTIONS (6)
  - ANXIETY [None]
  - COMPLETED SUICIDE [None]
  - DRUG INEFFECTIVE [None]
  - HEPATIC FAILURE [None]
  - MULTI-ORGAN FAILURE [None]
  - OVERDOSE [None]
